FAERS Safety Report 5237067-7 (Version None)
Quarter: 2007Q1

REPORT INFORMATION
  Report Type: 
  Country: None (occurrence: None)
  Receive Date: 20070209
  Receipt Date: 20070129
  Transmission Date: 20070707
  Serious: Yes (Death)
  Sender: FDA-Public Use
  Company Number: 2007S1000865

PATIENT
  Age: 51 Year
  Sex: Male

DRUGS (13)
  1. FENTANYL [Suspect]
     Indication: CANCER PAIN
     Dosage: 50 UG/HR;X1;TRANSDERMAL
     Route: 062
     Dates: start: 20060818, end: 20060909
  2. FENTANYL [Suspect]
     Indication: PROCEDURAL PAIN
     Dosage: 50 UG/HR;X1;TRANSDERMAL
     Route: 062
     Dates: start: 20060818, end: 20060909
  3. FENTANYL [Suspect]
     Indication: CANCER PAIN
     Dosage: 200 UG/HR;X1;TRANSDERMAL
     Route: 062
     Dates: start: 20060905, end: 20060909
  4. FENTANYL [Suspect]
     Indication: PROCEDURAL PAIN
     Dosage: 200 UG/HR;X1;TRANSDERMAL
     Route: 062
     Dates: start: 20060905, end: 20060909
  5. DOXEPIN HCL [Suspect]
     Indication: DEPRESSION
     Dosage: ORAL
     Dates: end: 20060909
  6. ALPRAZOLAM [Suspect]
     Indication: ANXIETY
     Dosage: ORAL
     Route: 048
     Dates: end: 20060909
  7. FENTANYL [Suspect]
     Indication: CANCER PAIN
     Dosage: 50 UG/HR;X1 TRANSDERMAL
     Route: 062
     Dates: start: 20060818, end: 20060909
  8. FENTANYL [Suspect]
     Indication: PROCEDURAL PAIN
     Dosage: 50 UG/HR;X1 TRANSDERMAL
     Route: 062
     Dates: start: 20060818, end: 20060909
  9. FENTANYL [Suspect]
     Indication: CANCER PAIN
     Dosage: 200 UG/HR;X1;TRANSDERMAL
     Route: 062
     Dates: start: 20060905, end: 20060909
  10. FENTANYL [Suspect]
     Indication: PROCEDURAL PAIN
     Dosage: 200 UG/HR;X1;TRANSDERMAL
     Route: 062
     Dates: start: 20060905, end: 20060909
  11. DOXEPIN HCL [Suspect]
     Indication: DEPRESSION
     Dosage: ORAL
     Route: 048
     Dates: end: 20060909
  12. ALPRAZOLAM [Suspect]
     Indication: ANXIETY
     Dosage: ORAL
     Route: 048
     Dates: end: 20060909
  13. OXYCODONE HCL [Concomitant]

REACTIONS (2)
  - DEPENDENCE [None]
  - MULTIPLE DRUG OVERDOSE [None]
